FAERS Safety Report 21074477 (Version 2)
Quarter: 2022Q3

REPORT INFORMATION
  Report Type: Spontaneous
  Country: JP (occurrence: JP)
  Receive Date: 20220713
  Receipt Date: 20220808
  Transmission Date: 20221027
  Serious: Yes (Hospitalization)
  Sender: FDA-Public Use
  Company Number: JP-CHUGAI-2022026176

PATIENT
  Age: 39 Year
  Sex: Female
  Weight: 67 kg

DRUGS (18)
  1. KADCYLA [Suspect]
     Active Substance: ADO-TRASTUZUMAB EMTANSINE
     Indication: Breast cancer
     Dosage: UNK
     Route: 041
     Dates: start: 20171002, end: 20190729
  2. KADCYLA [Suspect]
     Active Substance: ADO-TRASTUZUMAB EMTANSINE
     Dosage: UNK
     Route: 041
     Dates: start: 20190819, end: 20191223
  3. KADCYLA [Suspect]
     Active Substance: ADO-TRASTUZUMAB EMTANSINE
     Dosage: UNK
     Route: 041
     Dates: start: 20200120, end: 20211129
  4. CELECOXIB [Concomitant]
     Active Substance: CELECOXIB
     Dosage: UNK
     Route: 065
     Dates: start: 20170417, end: 20171023
  5. GLUTAMINE\SODIUM GUALENATE [Concomitant]
     Active Substance: GLUTAMINE\SODIUM GUALENATE
     Dosage: UNK
     Route: 065
     Dates: start: 20170417, end: 20171023
  6. RIBOFLAVIN [Concomitant]
     Active Substance: RIBOFLAVIN
     Dosage: UNK
     Route: 065
     Dates: start: 20170529, end: 20171023
  7. PYRIDOXAL [Concomitant]
     Active Substance: PYRIDOXAL
     Dosage: UNK
     Route: 065
     Dates: start: 20170529, end: 20171023
  8. PYRIDOXAL [Concomitant]
     Active Substance: PYRIDOXAL
     Dosage: UNK
     Route: 065
     Dates: start: 20200309, end: 20211018
  9. LOXONIN [LOXOPROFEN SODIUM] [Concomitant]
     Dosage: UNK
     Route: 065
     Dates: start: 20171225, end: 20180910
  10. REBAMIPIDE [Concomitant]
     Active Substance: REBAMIPIDE
     Dosage: UNK
     Route: 065
     Dates: start: 20171225, end: 20180910
  11. LYRICA [Concomitant]
     Active Substance: PREGABALIN
     Dosage: UNK
     Route: 065
     Dates: start: 20180226, end: 20180507
  12. SHAKUYAKUKANZOTO [Concomitant]
     Active Substance: HERBALS
     Dosage: UNK
     Route: 065
     Dates: start: 20180518, end: 20180618
  13. CALONAL [Concomitant]
     Active Substance: ACETAMINOPHEN
     Dosage: UNK
     Route: 065
     Dates: start: 20180730, end: 20190701
  14. DEXTROMETHORPHAN HYDROBROMIDE [Concomitant]
     Active Substance: DEXTROMETHORPHAN HYDROBROMIDE
     Dosage: UNK
     Route: 065
     Dates: start: 20190430, end: 20190701
  15. MAGNESIUM OXIDE [Concomitant]
     Active Substance: MAGNESIUM OXIDE
     Dosage: UNK, SINGLE
     Route: 065
     Dates: start: 20200420, end: 20200420
  16. SODIUM FERROUS CITRATE [Concomitant]
     Active Substance: SODIUM FERROUS CITRATE
     Dosage: UNK
     Route: 065
     Dates: start: 20200511, end: 20211018
  17. CALCIUM LACTATE [Concomitant]
     Active Substance: CALCIUM LACTATE
     Dosage: UNK
     Route: 065
     Dates: start: 20200727, end: 20210208
  18. FERROUS FUMARATE [Concomitant]
     Active Substance: FERROUS FUMARATE
     Dosage: UNK
     Route: 065
     Dates: start: 20200914, end: 20201005

REACTIONS (3)
  - Hepatopulmonary syndrome [Not Recovered/Not Resolved]
  - Portal hypertension [Recovering/Resolving]
  - Mucosal haemorrhage [Recovering/Resolving]

NARRATIVE: CASE EVENT DATE: 20180820
